FAERS Safety Report 20944856 (Version 2)
Quarter: 2022Q2

REPORT INFORMATION
  Report Type: Spontaneous
  Country: CN (occurrence: CN)
  Receive Date: 20220610
  Receipt Date: 20220623
  Transmission Date: 20220720
  Serious: Yes (Other)
  Sender: FDA-Public Use
  Company Number: CN-SANOFI-01132183

PATIENT

DRUGS (2)
  1. AMARYL [Suspect]
     Active Substance: GLIMEPIRIDE
     Dosage: UNK, QD
     Route: 048
  2. AMARYL [Suspect]
     Active Substance: GLIMEPIRIDE
     Dosage: UNK

REACTIONS (1)
  - Diabetes mellitus inadequate control [Recovered/Resolved]
